FAERS Safety Report 8791395 (Version 1)
Quarter: 2012Q4

REPORT INFORMATION
  Report Type: Spontaneous
  Country: US (occurrence: None)
  Receive Date: 20120911
  Receipt Date: 20120911
  Transmission Date: 20130627
  Serious: Yes (Hospitalization, Other)
  Sender: FDA-Public Use
  Company Number: JPI-P-024903

PATIENT
  Age: 65 Year
  Sex: Male
  Weight: 122.47 kg

DRUGS (3)
  1. XYREM (500 MILLIGRAM/ MILLILITERS, SOLUTION) (SODIUM OXYBATE) [Suspect]
     Indication: NARCOLEPSY
     Dosage: 4.5  gm (2.25 gm, 2 in 1 D), Oral
     Route: 048
     Dates: start: 20101215
  2. XYREM (500 MILLIGRAM/ MILLILITERS, SOLUTION) (SODIUM OXYBATE) [Suspect]
     Indication: NARCOLEPSY
     Dosage: (Titrating Dose), Oral
     Route: 048
  3. XYREM (500 MILLIGRAM/ MILLILITERS, SOLUTION) (SODIUM OXYBATE) [Suspect]
     Indication: NARCOLEPSY
     Dosage: 9 gm (4.5 gm, 2 in 1 D), Oral
     Route: 048
     Dates: start: 20120523, end: 20120818

REACTIONS (8)
  - Intervertebral disc protrusion [None]
  - Spinal column stenosis [None]
  - Myelitis transverse [None]
  - Gait disturbance [None]
  - Dysuria [None]
  - Dizziness [None]
  - Fall [None]
  - Urinary tract infection [None]
